FAERS Safety Report 8340291-8 (Version None)
Quarter: 2012Q2

REPORT INFORMATION
  Report Type: 
  Country: None (occurrence: None)
  Receive Date: 20120502
  Receipt Date: 20120502
  Transmission Date: 20120825
  Serious: No
  Sender: FDA-Public Use
  Company Number: None

PATIENT
  Sex: Female
  Weight: 93.441 kg

DRUGS (1)
  1. LEVOTHYROXINE SODIUM [Suspect]
     Dates: start: 20120406, end: 20120423

REACTIONS (4)
  - MYALGIA [None]
  - PRODUCT SUBSTITUTION ISSUE [None]
  - DRUG INTOLERANCE [None]
  - MUSCLE SPASMS [None]
